FAERS Safety Report 10411220 (Version 1)
Quarter: 2014Q3

REPORT INFORMATION
  Report Type: Spontaneous
  Country: US (occurrence: US)
  Receive Date: 20140826
  Receipt Date: 20140826
  Transmission Date: 20150326
  Serious: No
  Sender: FDA-Public Use
  Company Number: US-ASTRAZENECA-2013SE63015

PATIENT
  Age: 82 Year
  Sex: Female
  Weight: 61.7 kg

DRUGS (1)
  1. SYMBICORT [Suspect]
     Active Substance: BUDESONIDE\FORMOTEROL FUMARATE DIHYDRATE
     Indication: EMPHYSEMA
     Dosage: 160/4.5 MCG TWO INHALATIONS TWICE DAILY
     Route: 055

REACTIONS (3)
  - Intentional product misuse [Unknown]
  - Drug dose omission [Unknown]
  - Dysphonia [Unknown]
